FAERS Safety Report 25209795 (Version 1)
Quarter: 2025Q2

REPORT INFORMATION
  Report Type: Spontaneous
  Country: US (occurrence: US)
  Receive Date: 20250417
  Receipt Date: 20250417
  Transmission Date: 20250716
  Serious: No
  Sender: ABBVIE
  Company Number: US-ABBVIE-6221630

PATIENT
  Sex: Female

DRUGS (1)
  1. RINVOQ [Suspect]
     Active Substance: UPADACITINIB
     Indication: Maternal exposure timing unspecified
     Route: 064

REACTIONS (2)
  - Foetal exposure during pregnancy [Unknown]
  - Jaundice [Recovered/Resolved]

NARRATIVE: CASE EVENT DATE: 20240201
